FAERS Safety Report 26146161 (Version 1)
Quarter: 2025Q4

REPORT INFORMATION
  Report Type: Report from Study
  Country: US (occurrence: US)
  Receive Date: 20251211
  Receipt Date: 20251211
  Transmission Date: 20260118
  Serious: No
  Sender: MALLINCKRODT
  Company Number: US-MALLINCKRODT-MNK202507838

PATIENT
  Age: 21 Year
  Sex: Male

DRUGS (5)
  1. CORTICOTROPIN [Suspect]
     Active Substance: CORTICOTROPIN
     Indication: Keratitis
     Route: 058
  2. OFLOXACIN [Concomitant]
     Active Substance: OFLOXACIN
     Dosage: UNKNOWN
  3. FLUOROMETHOLONE [Concomitant]
     Active Substance: FLUOROMETHOLONE
     Dosage: UNKNOWN
  4. MAXITROL [DEXAMETHASONE;NEOMYCIN SULFATE;POLYMYXIN B SULFATE] [Concomitant]
     Dosage: 3.5-10000-0.1 (UNITS UNSPECIFIED)
  5. PREDNISOLONE ACETATE [Concomitant]
     Active Substance: PREDNISOLONE ACETATE
     Dosage: UNKNOWN

REACTIONS (1)
  - Injection site scar [Unknown]
